FAERS Safety Report 6171330-0 (Version None)
Quarter: 2009Q2

REPORT INFORMATION
  Report Type: 
  Country: None (occurrence: None)
  Receive Date: 20090428
  Receipt Date: 20090428
  Transmission Date: 20091009
  Serious: No
  Sender: FDA-Public Use
  Company Number: None

PATIENT
  Age: 60 Year
  Sex: Female
  Weight: 74.8435 kg

DRUGS (1)
  1. CEFUROXIME [Suspect]
     Indication: SINUSITIS
     Dosage: 250 MG TWICE DAILY PO
     Route: 048
     Dates: start: 20090410, end: 20090418

REACTIONS (3)
  - DEPRESSION [None]
  - IMPAIRED WORK ABILITY [None]
  - SOMNOLENCE [None]
